FAERS Safety Report 4943940-7 (Version None)
Quarter: 2006Q1

REPORT INFORMATION
  Report Type: 
  Country: None (occurrence: None)
  Receive Date: 20060313
  Receipt Date: 20060313
  Transmission Date: 20060701
  Serious: Yes (Other)
  Sender: FDA-Public Use
  Company Number: None

PATIENT
  Age: 59 Year
  Sex: Male
  Weight: 77.1115 kg

DRUGS (1)
  1. LIPITOR [Suspect]
     Indication: HYPERCHOLESTEROLAEMIA
     Dosage: 20MG  DAILY  PO
     Route: 048
     Dates: start: 20010101, end: 20060305

REACTIONS (10)
  - FEELING ABNORMAL [None]
  - MALAISE [None]
  - MUSCLE TWITCHING [None]
  - MUSCULAR WEAKNESS [None]
  - MYALGIA [None]
  - NECK PAIN [None]
  - NIGHT SWEATS [None]
  - PAIN [None]
  - PYREXIA [None]
  - SHOULDER PAIN [None]
